FAERS Safety Report 9343065 (Version 1)
Quarter: 2013Q2

REPORT INFORMATION
  Report Type: Report from Study
  Country: CA (occurrence: CA)
  Receive Date: 20130611
  Receipt Date: 20130611
  Transmission Date: 20140414
  Serious: Yes (Hospitalization)
  Sender: FDA-Public Use
  Company Number: CA-BAXTER-2013BAX021243

PATIENT
  Age: 39 Year
  Sex: Male

DRUGS (20)
  1. PROCYTOX [Suspect]
     Indication: DIFFUSE LARGE B-CELL LYMPHOMA
     Route: 042
     Dates: start: 20120424
  2. PROCYTOX [Suspect]
     Route: 042
     Dates: start: 20120808
  3. RITUXIMAB [Suspect]
     Indication: DIFFUSE LARGE B-CELL LYMPHOMA
     Route: 042
     Dates: start: 20120424
  4. RITUXIMAB [Suspect]
     Route: 042
     Dates: start: 20120919
  5. DOXORUBICIN [Suspect]
     Indication: DIFFUSE LARGE B-CELL LYMPHOMA
     Route: 042
     Dates: start: 20120424
  6. DOXORUBICIN [Suspect]
     Route: 042
     Dates: start: 20120808
  7. VINCRISTINE [Suspect]
     Indication: DIFFUSE LARGE B-CELL LYMPHOMA
     Route: 042
     Dates: start: 20120424
  8. VINCRISTINE [Suspect]
     Route: 042
     Dates: start: 20120808
  9. PREDNISONE [Suspect]
     Indication: DIFFUSE LARGE B-CELL LYMPHOMA
     Route: 042
     Dates: start: 20120424
  10. PREDNISONE [Suspect]
     Route: 042
     Dates: start: 20120919
  11. TYLENOL [Concomitant]
     Indication: INFUSION RELATED REACTION
     Route: 065
     Dates: start: 20120424, end: 20120919
  12. BENADRYL [Concomitant]
     Indication: INFUSION RELATED REACTION
     Route: 065
     Dates: start: 20120424, end: 20120919
  13. BENADRYL [Concomitant]
     Indication: VOMITING
     Route: 065
     Dates: start: 20120829, end: 20120829
  14. CIPRO [Concomitant]
     Indication: URINARY TRACT INFECTION
     Route: 065
     Dates: start: 20120912
  15. CIPRO [Concomitant]
     Route: 065
     Dates: start: 20121018
  16. STEMETIL [Concomitant]
     Indication: NAUSEA
     Route: 065
     Dates: start: 20120424
  17. CEFTRIAXONE [Concomitant]
     Indication: PRODUCT USED FOR UNKNOWN INDICATION
     Route: 042
     Dates: start: 20120928
  18. CLAVULIN [Concomitant]
     Indication: PRODUCT USED FOR UNKNOWN INDICATION
     Route: 065
     Dates: start: 20121018
  19. VIBRAMYCINE [Concomitant]
     Indication: PRODUCT USED FOR UNKNOWN INDICATION
     Route: 065
     Dates: start: 20120424, end: 20120919
  20. VESICARE [Concomitant]
     Indication: URINARY INCONTINENCE
     Route: 065
     Dates: start: 20121214, end: 20130130

REACTIONS (3)
  - Orchitis [Recovering/Resolving]
  - Prostatic abscess [Recovered/Resolved]
  - Scrotal abscess [Recovered/Resolved]
